FAERS Safety Report 5623431-0 (Version None)
Quarter: 2008Q1

REPORT INFORMATION
  Report Type: 
  Country: None (occurrence: None)
  Receive Date: 20080212
  Receipt Date: 20080131
  Transmission Date: 20080703
  Serious: Yes (Life-Threatening, Hospitalization, Other)
  Sender: FDA-Public Use
  Company Number: JP-PFIZER INC-2007103966

PATIENT
  Sex: Female
  Weight: 48 kg

DRUGS (13)
  1. DALACIN S [Suspect]
     Indication: PYREXIA
     Route: 042
     Dates: start: 20071115, end: 20071122
  2. DALACIN S [Suspect]
     Indication: INFECTION
  3. MODACIN [Suspect]
     Indication: PYREXIA
     Dosage: TEXT:1G; 2G-FREQ:FREQUENCY: BID
     Route: 042
     Dates: start: 20071115, end: 20071122
  4. MODACIN [Suspect]
     Indication: INFECTION
  5. ALPROSTADIL ALFADEX [Concomitant]
     Route: 042
     Dates: start: 20071115, end: 20071115
  6. DEXMEDETOMIDINE [Concomitant]
     Route: 042
     Dates: start: 20071115, end: 20071115
  7. URSO 250 [Concomitant]
     Route: 048
     Dates: start: 20071118, end: 20071122
  8. CEROCRAL [Concomitant]
     Route: 048
     Dates: start: 20071118, end: 20071122
  9. SELBEX [Concomitant]
     Route: 048
     Dates: start: 20071118, end: 20071122
  10. ATELEC [Concomitant]
     Route: 048
     Dates: start: 20071118, end: 20071122
  11. POLLAKISU [Concomitant]
     Route: 048
     Dates: start: 20071118, end: 20071122
  12. MYSLEE [Concomitant]
     Route: 048
     Dates: start: 20071118, end: 20071122
  13. INOVAN [Concomitant]
     Route: 042

REACTIONS (2)
  - ACUTE GENERALISED EXANTHEMATOUS PUSTULOSIS [None]
  - RENAL FAILURE ACUTE [None]
